FAERS Safety Report 6655530-9 (Version None)
Quarter: 2010Q1

REPORT INFORMATION
  Report Type: 
  Country: None (occurrence: None)
  Receive Date: 20100329
  Receipt Date: 20100318
  Transmission Date: 20100710
  Serious: Yes (Other)
  Sender: FDA-Public Use
  Company Number: IE-BAXTER-2010BH005811

PATIENT
  Age: 14 Year
  Weight: 57 kg

DRUGS (17)
  1. GAMMAGARD LIQUID [Suspect]
     Indication: DRUG USE FOR UNKNOWN INDICATION
     Route: 042
     Dates: start: 20100206, end: 20100206
  2. GAMMAGARD LIQUID [Suspect]
     Route: 042
     Dates: start: 20100206, end: 20100206
  3. GAMMAGARD LIQUID [Suspect]
     Route: 042
     Dates: start: 20100207, end: 20100208
  4. GAMMAGARD LIQUID [Suspect]
     Route: 042
     Dates: start: 20100208, end: 20100209
  5. GAMMAGARD LIQUID [Suspect]
     Route: 042
     Dates: start: 20100208, end: 20100209
  6. GAMMAGARD LIQUID [Suspect]
     Route: 042
     Dates: start: 20100208, end: 20100209
  7. GAMMAGARD LIQUID [Suspect]
     Route: 042
     Dates: start: 20100209, end: 20100210
  8. GAMMAGARD LIQUID [Suspect]
     Route: 042
     Dates: start: 20100209, end: 20100210
  9. GAMMAGARD LIQUID [Suspect]
     Route: 042
     Dates: start: 20100209, end: 20100210
  10. GAMMAGARD LIQUID [Suspect]
     Route: 042
     Dates: start: 20100209, end: 20100210
  11. VANCOMYCIN [Concomitant]
     Route: 042
     Dates: start: 20100206
  12. MEROPENEM [Concomitant]
     Route: 042
     Dates: start: 20100206
  13. VECURONIUM [Concomitant]
     Route: 042
     Dates: start: 20100206
  14. COTRIM [Concomitant]
     Route: 042
     Dates: start: 20100207
  15. HYDROCORTISONE [Concomitant]
     Route: 042
     Dates: start: 20100207
  16. GRANULOCYTE COLONY STIMULATING FACTOR [Concomitant]
     Route: 042
     Dates: start: 20100206
  17. HYDRALAZINE HCL [Concomitant]
     Route: 042
     Dates: start: 20100207

REACTIONS (1)
  - ANTI-ERYTHROCYTE ANTIBODY POSITIVE [None]
